FAERS Safety Report 22384816 (Version 1)
Quarter: 2023Q2

REPORT INFORMATION
  Report Type: Report from Study
  Country: IN (occurrence: None)
  Receive Date: 20230530
  Receipt Date: 20230530
  Transmission Date: 20230721
  Serious: Yes (Other)
  Sender: FDA-Public Use
  Company Number: 2023A118467

PATIENT
  Age: 64 Year
  Sex: Female

DRUGS (1)
  1. LYNPARZA [Suspect]
     Active Substance: OLAPARIB
     Indication: Ovarian cancer
     Route: 048

REACTIONS (5)
  - Interstitial lung disease [Recovering/Resolving]
  - Eye haemorrhage [Unknown]
  - Retinal disorder [Unknown]
  - Thrombosis [Unknown]
  - Oedema [Unknown]
